FAERS Safety Report 8018076-1 (Version None)
Quarter: 2012Q1

REPORT INFORMATION
  Report Type: 
  Country: None (occurrence: None)
  Receive Date: 20120103
  Receipt Date: 20111227
  Transmission Date: 20120608
  Serious: Yes (Death, Other)
  Sender: FDA-Public Use
  Company Number: JP-CELGENEUS-087-21880-11093539

PATIENT
  Sex: Male

DRUGS (14)
  1. ADALAT [Concomitant]
     Dosage: 20 MILLIGRAM
     Route: 048
     Dates: start: 20110402, end: 20110415
  2. OXYCONTIN [Concomitant]
     Indication: MULTIPLE MYELOMA
     Dosage: 10 MILLIGRAM
     Route: 048
     Dates: start: 20110223, end: 20110331
  3. SULFAMETHOXAZOLE AND TRIMETHOPRIM [Concomitant]
     Indication: PROPHYLAXIS
     Dosage: 1 TABLET
     Route: 048
     Dates: start: 20110303, end: 20110426
  4. ZOMETA [Concomitant]
     Dosage: 2 MILLIGRAM
     Route: 041
     Dates: start: 20110404, end: 20110404
  5. ASPIRIN [Concomitant]
     Indication: RENAL IMPAIRMENT
     Dosage: 100 MILLIGRAM
     Route: 048
     Dates: start: 20110305, end: 20110426
  6. MAGNESIUM OXIDE [Concomitant]
     Indication: PROPHYLAXIS
     Dosage: 660 MILLIGRAM
     Route: 048
     Dates: start: 20110304, end: 20110426
  7. REVLIMID [Suspect]
     Indication: MULTIPLE MYELOMA
     Dosage: 5 MILLIGRAM
     Route: 048
     Dates: start: 20110325, end: 20110331
  8. DEXAMETHASONE ACETATE [Suspect]
     Indication: MULTIPLE MYELOMA
     Dosage: 20 MILLIGRAM
     Route: 048
     Dates: start: 20110325, end: 20110329
  9. ALBUMIN (HUMAN) [Concomitant]
     Dosage: 10 GRAM
     Route: 041
     Dates: start: 20110402, end: 20110426
  10. EPADEL [Concomitant]
     Dosage: 1800 MILLIGRAM
     Route: 048
     Dates: start: 20110304, end: 20110401
  11. ITRACONAZOLE [Concomitant]
     Indication: PROPHYLAXIS
     Dosage: 100 MILLIGRAM
     Route: 048
     Dates: start: 20110302, end: 20110415
  12. ADALAT [Concomitant]
     Indication: HYPERTENSION
     Dosage: 40 MILLIGRAM
     Route: 048
     Dates: start: 20110304, end: 20110401
  13. ALLOPURINOL [Concomitant]
     Dosage: 100 MILLIGRAM
     Route: 048
     Dates: start: 20110304, end: 20110426
  14. RABEPRAZOLE SODIUM [Concomitant]
     Indication: PROPHYLAXIS
     Dosage: 20 MILLIGRAM
     Route: 048
     Dates: start: 20110304, end: 20110426

REACTIONS (8)
  - SEPSIS [None]
  - BLOOD GLUCOSE INCREASED [None]
  - CONSTIPATION [None]
  - CYTOMEGALOVIRUS VIRAEMIA [None]
  - ASPERGILLOSIS [None]
  - NEUTROPENIA [None]
  - THROMBOCYTOPENIA [None]
  - MALAISE [None]
